FAERS Safety Report 10635682 (Version 1)
Quarter: 2014Q4

REPORT INFORMATION
  Report Type: Report from Study
  Country: MX (occurrence: MX)
  Receive Date: 20141205
  Receipt Date: 20141205
  Transmission Date: 20150529
  Serious: Yes (Hospitalization)
  Sender: FDA-Public Use
  Company Number: PHHY2014MX159219

PATIENT
  Age: 72 Year
  Sex: Male

DRUGS (3)
  1. DIOVAN [Suspect]
     Active Substance: VALSARTAN
     Indication: HYPERTENSION
     Dosage: 1 DF, QD
     Route: 048
     Dates: start: 200910
  2. EXELON [Suspect]
     Active Substance: RIVASTIGMINE TARTRATE
     Indication: DYSTONIA
     Dosage: 1 DF (9.5 MG), QD
     Route: 065
     Dates: start: 2014
  3. EXELON [Suspect]
     Active Substance: RIVASTIGMINE TARTRATE
     Indication: IMPAIRED REASONING
     Route: 065
     Dates: start: 2014

REACTIONS (2)
  - Blood sodium decreased [Not Recovered/Not Resolved]
  - Off label use [Not Recovered/Not Resolved]
